FAERS Safety Report 21814712 (Version 1)
Quarter: 2023Q1

REPORT INFORMATION
  Report Type: Spontaneous
  Country: US (occurrence: US)
  Receive Date: 20230104
  Receipt Date: 20230104
  Transmission Date: 20230418
  Serious: No
  Sender: FDA-Public Use
  Company Number: US-AMGEN-USASP2022227189

PATIENT
  Sex: Female

DRUGS (11)
  1. OTEZLA [Suspect]
     Active Substance: APREMILAST
     Indication: Psoriasis
     Dosage: 30 MILLIGRAM, BID
     Route: 048
  2. ANUCORT-HC [Concomitant]
     Active Substance: HYDROCORTISONE ACETATE
     Dosage: 25 MILLIGRAM
  3. ATORVASTATIN [Concomitant]
     Active Substance: ATORVASTATIN
     Dosage: 10 MILLIGRAM
  4. AZITHROMYCIN [Concomitant]
     Active Substance: AZITHROMYCIN
     Dosage: 25 MILLIGRAM
  5. EMGALITY [Concomitant]
     Active Substance: GALCANEZUMAB-GNLM
     Dosage: 120 MILLIGRAM
  6. ESTRADIOL [Concomitant]
     Active Substance: ESTRADIOL
     Dosage: 1 MILLIGRAM
  7. EUTHYROX [Concomitant]
     Active Substance: LEVOTHYROXINE SODIUM
     Dosage: 50 MICROGRAM
  8. LOSARTAN POT HCTZ [Concomitant]
     Dosage: 50 MILLIGRAM
  9. METHYLPREDNISOLONE [Concomitant]
     Active Substance: METHYLPREDNISOLONE
     Dosage: 4 MILLIGRAM
  10. Metoprol retard [Concomitant]
     Dosage: 60 MILLIGRAM
  11. UBRELVY [Concomitant]
     Active Substance: UBROGEPANT
     Dosage: 100 MILLIGRAM

REACTIONS (2)
  - Pain [Not Recovered/Not Resolved]
  - Loss of personal independence in daily activities [Not Recovered/Not Resolved]
